FAERS Safety Report 6839718-X (Version None)
Quarter: 2010Q3

REPORT INFORMATION
  Report Type: 
  Country: None (occurrence: None)
  Receive Date: 20100708
  Receipt Date: 20100623
  Transmission Date: 20110219
  Serious: Yes (Hospitalization)
  Sender: FDA-Public Use
  Company Number: 2010002623

PATIENT
  Age: 77 Year
  Sex: Female

DRUGS (6)
  1. ERLOTINIB (ERLOTINIB) (TABLET) (ERLOTINIB) [Suspect]
     Indication: NON-SMALL CELL LUNG CANCER
     Dosage: (150 MG,QD), ORAL
     Route: 048
     Dates: start: 20080412
  2. SPIRIVA [Concomitant]
  3. EFFEXOR [Concomitant]
  4. ACTONEL [Concomitant]
  5. FLUTICASONE PROPIONATE [Concomitant]
  6. ACETAMINOPHEN [Concomitant]

REACTIONS (5)
  - DECREASED APPETITE [None]
  - HYPOKALAEMIA [None]
  - NAUSEA [None]
  - UNEVALUABLE EVENT [None]
  - VOMITING [None]
